FAERS Safety Report 20709689 (Version 1)
Quarter: 2022Q2

REPORT INFORMATION
  Report Type: Report from Study
  Country: BR (occurrence: BR)
  Receive Date: 20220414
  Receipt Date: 20220414
  Transmission Date: 20220721
  Serious: Yes (Hospitalization)
  Sender: FDA-Public Use
  Company Number: BR-BIOGEN-2022BI01112847

PATIENT
  Age: 39 Year
  Sex: Female
  Weight: 32 kg

DRUGS (3)
  1. TYSABRI [Suspect]
     Active Substance: NATALIZUMAB
     Indication: Multiple sclerosis
     Route: 042
     Dates: start: 20190301
  2. TYSABRI [Suspect]
     Active Substance: NATALIZUMAB
     Route: 042
     Dates: start: 2022
  3. TEGRETOL [Concomitant]
     Active Substance: CARBAMAZEPINE
     Indication: Multiple sclerosis
     Route: 065
     Dates: start: 201903

REACTIONS (6)
  - Malaise [Recovered/Resolved]
  - Swelling [Recovered/Resolved]
  - Polyuria [Not Recovered/Not Resolved]
  - Pain in extremity [Not Recovered/Not Resolved]
  - Gait disturbance [Not Recovered/Not Resolved]
  - Urinary tract infection [Recovered/Resolved with Sequelae]

NARRATIVE: CASE EVENT DATE: 20220311
